FAERS Safety Report 19749836 (Version 1)
Quarter: 2021Q3

REPORT INFORMATION
  Report Type: Spontaneous
  Country: US (occurrence: US)
  Receive Date: 20210826
  Receipt Date: 20210826
  Transmission Date: 20211014
  Serious: Yes (Hospitalization)
  Sender: FDA-Public Use
  Company Number: None

PATIENT
  Age: 69 Year
  Sex: Male
  Weight: 102.15 kg

DRUGS (18)
  1. HYDRALAZINE 100MG [Concomitant]
     Active Substance: HYDRALAZINE HYDROCHLORIDE
  2. TYLENOL [Concomitant]
     Active Substance: ACETAMINOPHEN
  3. SYNTHROID [Concomitant]
     Active Substance: LEVOTHYROXINE SODIUM
  4. LEVOFLOXACIN 500MG [Concomitant]
     Active Substance: LEVOFLOXACIN
  5. PROTONIX [Concomitant]
     Active Substance: PANTOPRAZOLE SODIUM
  6. ALLOPURINOL 500MG [Concomitant]
  7. CRESTOR [Concomitant]
     Active Substance: ROSUVASTATIN CALCIUM
  8. BACTRIM DS 800?160MG [Concomitant]
  9. ZETIA [Concomitant]
     Active Substance: EZETIMIBE
  10. TEMOZOLOMIDE. [Suspect]
     Active Substance: TEMOZOLOMIDE
     Indication: BRAIN NEOPLASM MALIGNANT
     Dosage: ?          OTHER FREQUENCY:QDX5DAYS Q28DAYS;?
     Dates: start: 20210528
  11. COLACE [Concomitant]
     Active Substance: DOCUSATE SODIUM
  12. MULTIVITAMIN [Concomitant]
     Active Substance: VITAMINS
  13. IMBRUVICA [Concomitant]
     Active Substance: IBRUTINIB
  14. COREG 6.25MG [Concomitant]
  15. ISRADIPINE 5MG [Concomitant]
  16. PROBIOTIC BLEND [Concomitant]
  17. MELATONIN 3MG [Concomitant]
  18. ZOFRAN [Concomitant]
     Active Substance: ONDANSETRON HYDROCHLORIDE

REACTIONS (1)
  - Pneumonia [None]

NARRATIVE: CASE EVENT DATE: 20210816
